FAERS Safety Report 11088677 (Version 13)
Quarter: 2017Q4

REPORT INFORMATION
  Report Type: Report from Study
  Country: US (occurrence: US)
  Receive Date: 20150504
  Receipt Date: 20171019
  Transmission Date: 20180320
  Serious: Yes (Hospitalization)
  Sender: FDA-Public Use
  Company Number: US-ACTELION-A-US2015-117345

PATIENT
  Age: 69 Year
  Sex: Male
  Weight: 87.98 kg

DRUGS (3)
  1. OXYGEN. [Concomitant]
     Active Substance: OXYGEN
  2. TRACLEER [Suspect]
     Active Substance: BOSENTAN
     Dosage: 125 MG, BID
     Route: 048
  3. TRACLEER [Suspect]
     Active Substance: BOSENTAN
     Indication: PULMONARY ARTERIAL HYPERTENSION
     Dosage: 125 MG, BID
     Route: 048
     Dates: start: 20090720

REACTIONS (53)
  - Respiratory disorder [Unknown]
  - Constipation [Unknown]
  - Weight decreased [Unknown]
  - Choking [Unknown]
  - Chest pain [Unknown]
  - Pneumonia [Unknown]
  - Rib fracture [Unknown]
  - Catheter placement [Unknown]
  - Culture wound positive [Unknown]
  - Coma [Unknown]
  - Sepsis [Unknown]
  - Dizziness [Unknown]
  - Wound [Unknown]
  - Blood potassium increased [Unknown]
  - Angina pectoris [Unknown]
  - Loss of consciousness [Unknown]
  - Peripheral swelling [Unknown]
  - Pyrexia [Unknown]
  - Spinal fracture [Unknown]
  - Skin abrasion [Unknown]
  - Exercise tolerance decreased [Unknown]
  - Decreased appetite [Unknown]
  - Fall [Unknown]
  - Dyspnoea [Unknown]
  - Cerebrovascular accident [Unknown]
  - Complication associated with device [Unknown]
  - Device occlusion [Unknown]
  - Migraine [Unknown]
  - Hypotension [Unknown]
  - Nocturnal dyspnoea [Unknown]
  - Fatigue [Unknown]
  - Hand fracture [Unknown]
  - Pseudomonas infection [Unknown]
  - Device related infection [Unknown]
  - Device dislocation [Unknown]
  - Feeling abnormal [Unknown]
  - Memory impairment [Unknown]
  - Renal impairment [Unknown]
  - Nausea [Unknown]
  - Dizziness postural [Unknown]
  - Respiratory arrest [Unknown]
  - Syncope [Unknown]
  - Limb injury [Unknown]
  - Bedridden [Unknown]
  - Balance disorder [Unknown]
  - Endotracheal intubation [Unknown]
  - Carbon dioxide increased [Unknown]
  - Cardiac failure congestive [Unknown]
  - Staphylococcal infection [Unknown]
  - Skin ulcer [Unknown]
  - Pain in extremity [Unknown]
  - Muscular weakness [Unknown]
  - Dyspnoea exertional [Unknown]

NARRATIVE: CASE EVENT DATE: 20150331
